FAERS Safety Report 9490555 (Version 1)
Quarter: 2013Q3

REPORT INFORMATION
  Report Type: Spontaneous
  Country: US (occurrence: None)
  Receive Date: 20130827
  Receipt Date: 20130827
  Transmission Date: 20140515
  Serious: Yes (Other)
  Sender: FDA-Public Use
  Company Number: None

PATIENT
  Age: 42 Year
  Sex: Female
  Weight: 46.27 kg

DRUGS (10)
  1. ANDROGEL [Suspect]
     Indication: MUSCLE DISORDER
     Dosage: STRENGTH: 1.62   2 DOSES (PUMPS)  TWICE  MORNING/BEDTIME  SKIN
     Route: 061
     Dates: start: 20130108, end: 20130428
  2. AMOXICILLAN [Concomitant]
  3. BACTRIM [Concomitant]
  4. KENALOG [Concomitant]
  5. MULTI-VITAMIN [Concomitant]
  6. CHLORAPHYL [Concomitant]
  7. SPIRILUNA [Concomitant]
  8. FLAXSEED OIL [Concomitant]
  9. B-12 [Concomitant]
  10. HERBAL DETOX SUPPLEMENT CONTAINS CASCADA SAGRADA, MILK THISTLE, PSHYLIUM [Concomitant]

REACTIONS (18)
  - Malaise [None]
  - Breast pain [None]
  - Anxiety [None]
  - Chest pain [None]
  - Breast swelling [None]
  - Paraesthesia [None]
  - Vomiting [None]
  - Nausea [None]
  - Weight increased [None]
  - Weight loss poor [None]
  - Androgenetic alopecia [None]
  - Hair texture abnormal [None]
  - Hair growth abnormal [None]
  - Accidental exposure to product [None]
  - Blood testosterone increased [None]
  - Skin atrophy [None]
  - Vaginal disorder [None]
  - Urinary tract infection [None]
